FAERS Safety Report 14212079 (Version 1)
Quarter: 2017Q4

REPORT INFORMATION
  Report Type: Spontaneous
  Country: US (occurrence: US)
  Receive Date: 20171121
  Receipt Date: 20171121
  Transmission Date: 20180321
  Serious: Yes (Other)
  Sender: FDA-Public Use
  Company Number: None

PATIENT
  Age: 35 Year
  Sex: Female
  Weight: 63 kg

DRUGS (2)
  1. KENALOG [Suspect]
     Active Substance: TRIAMCINOLONE ACETONIDE
  2. PREDNISONE. [Suspect]
     Active Substance: PREDNISONE
     Indication: ECZEMA
     Dosage: ?          OTHER FREQUENCY:EVERY OTHER DAY;?
     Route: 061
     Dates: start: 20090601, end: 20170515

REACTIONS (9)
  - Secretion discharge [None]
  - Endocrine disorder [None]
  - Sleep disorder [None]
  - Skin exfoliation [None]
  - Pruritus [None]
  - Steroid withdrawal syndrome [None]
  - Erythema [None]
  - Dermatitis [None]
  - Discomfort [None]

NARRATIVE: CASE EVENT DATE: 20160515
